FAERS Safety Report 19952210 (Version 2)
Quarter: 2021Q4

REPORT INFORMATION
  Report Type: Spontaneous
  Country: US (occurrence: US)
  Receive Date: 20211013
  Receipt Date: 20211101
  Transmission Date: 20220303
  Serious: Yes (Death)
  Sender: FDA-Public Use
  Company Number: US-BEH-2021136600

PATIENT
  Age: 25 Year
  Sex: Male

DRUGS (3)
  1. HIZENTRA [Suspect]
     Active Substance: HUMAN IMMUNOGLOBULIN G
     Indication: Cerebellar ataxia
     Dosage: 16 GRAM, QW
     Route: 058
     Dates: start: 202108
  2. HIZENTRA [Suspect]
     Active Substance: HUMAN IMMUNOGLOBULIN G
     Dosage: 16 GRAM, EVERY 10 DAYS
     Route: 058
     Dates: start: 20211027
  3. HIZENTRA [Suspect]
     Active Substance: HUMAN IMMUNOGLOBULIN G
     Dosage: 16 GRAM, PRN
     Route: 058
     Dates: start: 20211027

REACTIONS (8)
  - Death [Fatal]
  - Peripheral swelling [Unknown]
  - Cough [Unknown]
  - Decreased appetite [Unknown]
  - Infusion site pain [Unknown]
  - Infusion site swelling [Unknown]
  - No adverse event [Unknown]
  - Off label use [Unknown]
